FAERS Safety Report 8338719-2 (Version None)
Quarter: 2012Q2

REPORT INFORMATION
  Report Type: 
  Country: None (occurrence: None)
  Receive Date: 20120504
  Receipt Date: 20120420
  Transmission Date: 20120825
  Serious: Yes (Hospitalization)
  Sender: FDA-Public Use
  Company Number: PL-WATSON-2011-18584

PATIENT
  Age: 23 Year
  Sex: Female

DRUGS (3)
  1. BACLOFEN [Suspect]
     Indication: PRODUCT USED FOR UNKNOWN INDICATION
     Dosage: UNK
     Route: 065
  2. ALCOHOL [Suspect]
     Indication: PRODUCT USED FOR UNKNOWN INDICATION
     Dosage: UNK
     Route: 065
  3. LAMOTRIGINE [Suspect]
     Indication: PRODUCT USED FOR UNKNOWN INDICATION
     Dosage: 100-200 CAPSULES
     Route: 065

REACTIONS (13)
  - VENTRICULAR ARRHYTHMIA [None]
  - RHABDOMYOLYSIS [None]
  - ELECTROCARDIOGRAM QT PROLONGED [None]
  - TOXICITY TO VARIOUS AGENTS [None]
  - HYPONATRAEMIA [None]
  - CARDIOGENIC SHOCK [None]
  - EPILEPSY [None]
  - ENCEPHALOPATHY [None]
  - RESPIRATORY DEPRESSION [None]
  - HYPOKALAEMIA [None]
  - ATRIOVENTRICULAR BLOCK [None]
  - COMA [None]
  - VENTRICULAR FIBRILLATION [None]
